FAERS Safety Report 23181594 (Version 2)
Quarter: 2023Q4

REPORT INFORMATION
  Report Type: Report from Study
  Country: CA (occurrence: CA)
  Receive Date: 20231114
  Receipt Date: 20231205
  Transmission Date: 20240110
  Serious: Yes (Hospitalization, Other)
  Sender: FDA-Public Use
  Company Number: CA-ABBVIE-5489807

PATIENT
  Sex: Male

DRUGS (2)
  1. SKYRIZI [Suspect]
     Active Substance: RISANKIZUMAB-RZAA
     Indication: Crohn^s disease
     Route: 058
     Dates: start: 20231018, end: 20231018
  2. SKYRIZI [Suspect]
     Active Substance: RISANKIZUMAB-RZAA
     Indication: Crohn^s disease
     Dosage: WEEK 4
     Route: 058
     Dates: start: 202311, end: 202311

REACTIONS (4)
  - Clostridium difficile colitis [Not Recovered/Not Resolved]
  - Ileostomy [Unknown]
  - White blood cell count increased [Unknown]
  - Post procedural infection [Unknown]

NARRATIVE: CASE EVENT DATE: 20230101
